FAERS Safety Report 8937196 (Version 1)
Quarter: 2012Q4

REPORT INFORMATION
  Report Type: Spontaneous
  Country: US (occurrence: None)
  Receive Date: 20121128
  Receipt Date: 20121128
  Transmission Date: 20130627
  Serious: Yes (Hospitalization)
  Sender: FDA-Public Use
  Company Number: None

PATIENT
  Age: 69 Year
  Sex: Male
  Weight: 98.9 kg

DRUGS (7)
  1. LISINOPRIL [Suspect]
     Dosage: chronic
     Route: 048
  2. SIMVASTATIN [Concomitant]
  3. NIASPAN ER [Concomitant]
  4. CILOSTAZOL [Concomitant]
  5. ASA [Concomitant]
  6. ALLOPURINOL [Concomitant]
  7. MUCINEX D [Concomitant]

REACTIONS (2)
  - Angioedema [None]
  - Drug hypersensitivity [None]
